FAERS Safety Report 20170633 (Version 1)
Quarter: 2021Q4

REPORT INFORMATION
  Report Type: Spontaneous
  Country: US (occurrence: None)
  Receive Date: 20211209
  Receipt Date: 20211209
  Transmission Date: 20220304
  Serious: No
  Sender: FDA-Public Use
  Company Number: None

PATIENT
  Sex: Female

DRUGS (1)
  1. VUMERITY [Suspect]
     Active Substance: DIROXIMEL FUMARATE
     Indication: Multiple sclerosis
     Dosage: OTHER QUANTITY : 2 CAPSULES;?FREQUENCY : TWICE A DAY;?
     Route: 048
     Dates: start: 20201201

REACTIONS (1)
  - Multiple sclerosis [None]
